FAERS Safety Report 23658162 (Version 3)
Quarter: 2024Q2

REPORT INFORMATION
  Report Type: Spontaneous
  Country: GR (occurrence: GR)
  Receive Date: 20240321
  Receipt Date: 20240429
  Transmission Date: 20240715
  Serious: No
  Sender: FDA-Public Use
  Company Number: GR-PFIZER INC-PV202400028672

PATIENT
  Age: 16 Year
  Sex: Male
  Weight: 69 kg

DRUGS (1)
  1. GENOTROPIN [Suspect]
     Active Substance: SOMATROPIN
     Indication: Growth hormone deficiency
     Dosage: 13.4 MG, WEEKLY
     Route: 058
     Dates: start: 202402

REACTIONS (1)
  - Wrong technique in device usage process [Unknown]
